FAERS Safety Report 15073858 (Version 1)
Quarter: 2018Q2

REPORT INFORMATION
  Report Type: Report from Study
  Country: KR (occurrence: KR)
  Receive Date: 20180627
  Receipt Date: 20180627
  Transmission Date: 20180711
  Serious: Yes (Hospitalization, Other)
  Sender: FDA-Public Use
  Company Number: KR-EISAI MEDICAL RESEARCH-EC-2018-041734

PATIENT
  Age: 72 Year
  Sex: Female
  Weight: 50 kg

DRUGS (12)
  1. AMLODIPINE [Concomitant]
     Active Substance: AMLODIPINE BESYLATE
  2. GLUCOPHAGE [Concomitant]
     Active Substance: METFORMIN HYDROCHLORIDE
  3. LOPMIN [Concomitant]
  4. ROVELITO [Concomitant]
  5. NESINA [Concomitant]
     Active Substance: ALOGLIPTIN BENZOATE
  6. SYNTHROID [Concomitant]
     Active Substance: LEVOTHYROXINE SODIUM
  7. PARAMACET [Concomitant]
     Active Substance: ACETAMINOPHEN\TRAMADOL
  8. CALTEO [Concomitant]
  9. APETROL [Concomitant]
  10. LENVATINIB [Suspect]
     Active Substance: LENVATINIB
     Indication: PAPILLARY THYROID CANCER
     Dosage: BLINDED DOSE
     Route: 048
     Dates: start: 20180531
  11. DICAMAX [Concomitant]
  12. TRANSAMIN [Concomitant]
     Active Substance: TRANEXAMIC ACID

REACTIONS (2)
  - Abdominal pain [Not Recovered/Not Resolved]
  - Diarrhoea [Not Recovered/Not Resolved]

NARRATIVE: CASE EVENT DATE: 20180618
